FAERS Safety Report 7798945-8 (Version None)
Quarter: 2011Q4

REPORT INFORMATION
  Report Type: 
  Country: None (occurrence: None)
  Receive Date: 20111006
  Receipt Date: 20110929
  Transmission Date: 20120403
  Serious: Yes (Other)
  Sender: FDA-Public Use
  Company Number: US-PFIZER INC-2011233096

PATIENT
  Sex: Male

DRUGS (4)
  1. TYLENOL-500 [Suspect]
     Indication: ARTHRITIS
     Dosage: 1000 MG, 2X/DAY
     Dates: start: 20110101, end: 20110101
  2. CELEBREX [Suspect]
     Indication: ARTHRITIS
     Dosage: 200 MG, DAILY
     Route: 048
     Dates: start: 20110101
  3. TAMSULOSIN [Concomitant]
     Indication: BLADDER DISORDER
     Dosage: 0.4 MG, DAILY
  4. CELEBREX [Suspect]
     Dosage: 200 MG, 2X/DAY
     Route: 048
     Dates: start: 20110101

REACTIONS (5)
  - GAIT DISTURBANCE [None]
  - DRUG INEFFECTIVE [None]
  - PAIN [None]
  - FEELING DRUNK [None]
  - HAEMOGLOBIN DECREASED [None]
